FAERS Safety Report 12467329 (Version 1)
Quarter: 2016Q2

REPORT INFORMATION
  Report Type: Spontaneous
  Country: US (occurrence: US)
  Receive Date: 20160615
  Receipt Date: 20160615
  Transmission Date: 20160815
  Serious: No
  Sender: FDA-Public Use
  Company Number: US-PFIZER INC-2016289285

PATIENT
  Age: 42 Year
  Sex: Male

DRUGS (2)
  1. AZITHROMYCIN ANHYDROUS. [Suspect]
     Active Substance: AZITHROMYCIN ANHYDROUS
     Dosage: 2 DF, UNK (250 MG X5 DAYS, 2 TABS FIRST DAY THEN 1 TAB DAILY)
     Route: 048
  2. AZITHROMYCIN ANHYDROUS. [Suspect]
     Active Substance: AZITHROMYCIN ANHYDROUS
     Dosage: 1 DF, DAILY (250 MG X5 DAYS, 2 TABS FIRST DAY THEN 1 TAB DAILY)
     Route: 048

REACTIONS (2)
  - Condition aggravated [Unknown]
  - Pyrexia [Unknown]
